FAERS Safety Report 5451513-5 (Version None)
Quarter: 2007Q3

REPORT INFORMATION
  Report Type: 
  Country: None (occurrence: None)
  Receive Date: 20070913
  Receipt Date: 20070907
  Transmission Date: 20080115
  Serious: Yes (Other)
  Sender: FDA-Public Use
  Company Number: HQWYE070507SEP07

PATIENT
  Sex: Male

DRUGS (1)
  1. CORDAREX [Suspect]
     Route: 048

REACTIONS (2)
  - PEMPHIGUS [None]
  - SUNBURN [None]
